FAERS Safety Report 16601638 (Version 2)
Quarter: 2019Q3

REPORT INFORMATION
  Report Type: Spontaneous
  Country: EG (occurrence: EG)
  Receive Date: 20190719
  Receipt Date: 20190729
  Transmission Date: 20191004
  Serious: Yes (Life-Threatening, Hospitalization)
  Sender: FDA-Public Use
  Company Number: EG-NOVOPROD-673100

PATIENT
  Age: 68 Year
  Sex: Male
  Weight: 120 kg

DRUGS (2)
  1. MIXTARD HUMAN 70/30 [Suspect]
     Active Substance: INSULIN HUMAN
     Indication: TYPE 1 DIABETES MELLITUS
     Dosage: 45 IU, QD(30U AM,15U PM)
     Route: 058
  2. EZAPRIL [Concomitant]
     Indication: HYPERTENSION
     Dosage: ONCE DAILY
     Route: 048

REACTIONS (1)
  - Cerebrovascular accident [Recovered/Resolved]

NARRATIVE: CASE EVENT DATE: 20180910
